FAERS Safety Report 12664391 (Version 2)
Quarter: 2016Q3

REPORT INFORMATION
  Report Type: Spontaneous
  Country: BR (occurrence: BR)
  Receive Date: 20160818
  Receipt Date: 20160822
  Transmission Date: 20161109
  Serious: Yes (Other)
  Sender: FDA-Public Use
  Company Number: BR-009507513-1608BRA007340

PATIENT
  Sex: Male
  Weight: 78 kg

DRUGS (5)
  1. VYTORIN [Suspect]
     Active Substance: EZETIMIBE\SIMVASTATIN
     Indication: HYPERTENSION
     Dosage: 10-20 MG, QD
     Route: 048
     Dates: start: 2012
  2. DENYL (CITALOPRAM HYDROBROMIDE) [Concomitant]
     Indication: PROPHYLAXIS
     Dosage: UNK
  3. BRILINTA [Concomitant]
     Active Substance: TICAGRELOR
     Indication: THROMBOSIS PROPHYLAXIS
  4. OLMETEC [Concomitant]
     Active Substance: OLMESARTAN MEDOXOMIL
     Indication: HYPERTENSION
     Dosage: 1 TABLET, DAILY
     Route: 048
     Dates: start: 2012
  5. SOMALGIN [Concomitant]
     Active Substance: ASPIRIN\DIHYDROXYALUMINUM AMINOACETATE ANHYDROUS\MAGNESIUM CARBONATE
     Indication: HYPERTENSION
     Dosage: UNK
     Dates: end: 2015

REACTIONS (7)
  - Blood thyroid stimulating hormone [Not Recovered/Not Resolved]
  - Abdominal pain upper [Recovered/Resolved]
  - Product use issue [Unknown]
  - Haemorrhage [Recovered/Resolved]
  - Anaemia [Recovered/Resolved]
  - Haematochezia [Not Recovered/Not Resolved]
  - Glaucoma [Not Recovered/Not Resolved]

NARRATIVE: CASE EVENT DATE: 2013
